FAERS Safety Report 17763133 (Version 2)
Quarter: 2021Q1

REPORT INFORMATION
  Report Type: Report from Study
  Country: None (occurrence: US)
  Receive Date: 20200508
  Receipt Date: 20210318
  Transmission Date: 20210419
  Serious: Yes (Hospitalization, Other)
  Sender: FDA-Public Use
  Company Number: US-ABBVIE-20P-163-3392029-00

PATIENT
  Age: 44 Year
  Sex: Female
  Weight: 95.34 kg

DRUGS (3)
  1. ALBUTEROL. [Concomitant]
     Active Substance: ALBUTEROL
     Indication: PRODUCT USED FOR UNKNOWN INDICATION
  2. ORILISSA [Suspect]
     Active Substance: ELAGOLIX SODIUM
     Indication: PRODUCT USED FOR UNKNOWN INDICATION
     Route: 048
     Dates: start: 201601
  3. IBUPROFEN. [Suspect]
     Active Substance: IBUPROFEN
     Indication: ABDOMINAL PAIN
     Route: 065

REACTIONS (26)
  - Haemorrhage [Recovered/Resolved]
  - Back pain [Recovered/Resolved]
  - Abdominal pain [Recovered/Resolved]
  - Urinary incontinence [Not Recovered/Not Resolved]
  - Blood pressure increased [Recovered/Resolved]
  - Weight decreased [Not Recovered/Not Resolved]
  - Syncope [Recovered/Resolved]
  - Abdominal infection [Recovered/Resolved]
  - Impaired driving ability [Not Recovered/Not Resolved]
  - Uterine leiomyoma [Recovered/Resolved]
  - Visual impairment [Recovered/Resolved]
  - Abdominal pain lower [Not Recovered/Not Resolved]
  - Muscle spasms [Recovered/Resolved]
  - Hysterectomy [Unknown]
  - Post procedural complication [Unknown]
  - Loss of consciousness [Recovered/Resolved]
  - Pyrexia [Recovered/Resolved]
  - Hypophagia [Not Recovered/Not Resolved]
  - Haemorrhage [Recovered/Resolved]
  - Cardiovascular insufficiency [Recovered/Resolved]
  - Impaired work ability [Not Recovered/Not Resolved]
  - Cough [Not Recovered/Not Resolved]
  - Bronchitis [Unknown]
  - Procedural haemorrhage [Unknown]
  - Pollakiuria [Not Recovered/Not Resolved]
  - Vomiting [Not Recovered/Not Resolved]

NARRATIVE: CASE EVENT DATE: 201602
